FAERS Safety Report 8917612 (Version 4)
Quarter: 2014Q2

REPORT INFORMATION
  Report Type: Spontaneous
  Country: US (occurrence: US)
  Receive Date: 20121119
  Receipt Date: 20140516
  Transmission Date: 20141212
  Serious: Yes (Hospitalization, Other)
  Sender: FDA-Public Use
  Company Number: US-009507513-1211USA006981

PATIENT
  Sex: Female
  Weight: 86.4 kg

DRUGS (20)
  1. FOSAMAX [Suspect]
     Indication: OSTEOPOROSIS
     Dosage: 10 MG, QD
     Route: 048
     Dates: start: 200004
  2. FOSAMAX [Suspect]
     Indication: OSTEOPENIA
     Dosage: 70 MG, QW
     Route: 048
     Dates: start: 20011015
  3. FOSAMAX PLUS D [Suspect]
     Indication: OSTEOPOROSIS
     Dosage: 70MG/2800IU  QW
     Route: 048
     Dates: start: 20061013
  4. FOSAMAX PLUS D [Suspect]
     Indication: OSTEOPENIA
  5. FOSAMAX [Suspect]
     Indication: OSTEOPOROSIS
     Route: 048
  6. FOSAMAX [Suspect]
     Indication: OSTEOPENIA
  7. ALENDRONATE SODIUM [Suspect]
     Indication: OSTEOPOROSIS
     Dosage: 70 MG, UNK
     Route: 048
     Dates: start: 20090223
  8. ALENDRONATE SODIUM [Suspect]
     Indication: OSTEOPENIA
  9. IBUPROFEN [Concomitant]
     Indication: RHEUMATOID ARTHRITIS
  10. CELECOXIB [Concomitant]
     Indication: RHEUMATOID ARTHRITIS
  11. MELOXICAM [Concomitant]
     Indication: RHEUMATOID ARTHRITIS
  12. INDOMETHACIN [Concomitant]
     Indication: RHEUMATOID ARTHRITIS
  13. VALDECOXIB [Concomitant]
     Indication: RHEUMATOID ARTHRITIS
  14. CORTICOSTEROIDS (UNSPECIFIED) [Concomitant]
     Indication: RHEUMATOID ARTHRITIS
  15. METHOTREXATE [Concomitant]
     Indication: RHEUMATOID ARTHRITIS
  16. INFLIXIMAB [Concomitant]
     Indication: RHEUMATOID ARTHRITIS
  17. CERTOLIZUMAB PEGOL [Concomitant]
     Indication: RHEUMATOID ARTHRITIS
  18. REMICADE [Concomitant]
     Indication: RHEUMATOID ARTHRITIS
  19. LEFLUNOMIDE [Concomitant]
     Indication: RHEUMATOID ARTHRITIS
     Dosage: 20 MG, QD
     Route: 048
  20. CIMZIA [Concomitant]
     Indication: RHEUMATOID ARTHRITIS
     Dosage: 400 MG, UNK

REACTIONS (109)
  - Intramedullary rod insertion [Unknown]
  - Radius fracture [Unknown]
  - Ulna fracture [Unknown]
  - Acute coronary syndrome [Unknown]
  - Open reduction of fracture [Unknown]
  - Shoulder arthroplasty [Unknown]
  - Shoulder arthroplasty [Unknown]
  - Femur fracture [Unknown]
  - Deafness [Unknown]
  - Blindness [Unknown]
  - Intramedullary rod insertion [Unknown]
  - Femoral neck fracture [Unknown]
  - Intramedullary rod insertion [Unknown]
  - Femur fracture [Unknown]
  - Spinal compression fracture [Unknown]
  - Loss of consciousness [Unknown]
  - Rotator cuff repair [Unknown]
  - Myocardial infarction [Unknown]
  - Myocardial infarction [Unknown]
  - Cardiac pacemaker insertion [Unknown]
  - Spinal fusion surgery [Unknown]
  - Pulmonary embolism [Unknown]
  - Deep vein thrombosis [Unknown]
  - Vena cava filter insertion [Unknown]
  - Syncope [Unknown]
  - Femur fracture [Recovering/Resolving]
  - Pelvic fracture [Unknown]
  - Spinal fracture [Unknown]
  - Fall [Unknown]
  - Fracture nonunion [Unknown]
  - Electrophoresis protein abnormal [Unknown]
  - Blood bilirubin increased [Unknown]
  - Rotator cuff syndrome [Recovering/Resolving]
  - Pelvic discomfort [Recovering/Resolving]
  - Red blood cell sedimentation rate increased [Unknown]
  - Muscle tightness [Unknown]
  - Neuropathy peripheral [Unknown]
  - Osteoarthritis [Unknown]
  - Spinal osteoarthritis [Unknown]
  - Radiculopathy [Unknown]
  - Epidural fibrosis [Unknown]
  - Pain [Unknown]
  - Fall [Unknown]
  - Spinal column stenosis [Unknown]
  - Intervertebral disc degeneration [Unknown]
  - Scoliosis [Unknown]
  - Diverticulitis [Unknown]
  - Spondylolisthesis [Unknown]
  - Intervertebral disc protrusion [Unknown]
  - Pyrexia [Unknown]
  - Lung infiltration [Unknown]
  - Pneumonia [Unknown]
  - Urinary tract infection [Recovering/Resolving]
  - Staphylococcal infection [Unknown]
  - Cardiac murmur [Unknown]
  - Urine ketone body present [Unknown]
  - Bone disorder [Unknown]
  - Cardiac disorder [Unknown]
  - Asthma [Unknown]
  - Metabolic syndrome [Unknown]
  - Hyperlipidaemia [Unknown]
  - Glaucoma [Unknown]
  - Cachexia [Unknown]
  - Cough [Unknown]
  - Sneezing [Unknown]
  - Myocardial ischaemia [Unknown]
  - Inappropriate schedule of drug administration [Unknown]
  - Sick sinus syndrome [Unknown]
  - Left ventricular hypertrophy [Unknown]
  - Sinus arrhythmia [Unknown]
  - Arthralgia [Unknown]
  - Syncope [Unknown]
  - Goitre [Unknown]
  - Cataract [Unknown]
  - Anaemia [Unknown]
  - Arthritis [Unknown]
  - Haemoglobin decreased [Unknown]
  - Drug ineffective [Unknown]
  - Musculoskeletal pain [Not Recovered/Not Resolved]
  - Atelectasis [Unknown]
  - Weight increased [Unknown]
  - Constipation [Unknown]
  - Increased tendency to bruise [Unknown]
  - Headache [Unknown]
  - Amnesia [Unknown]
  - Anxiety [Unknown]
  - Depression [Unknown]
  - Night sweats [Unknown]
  - Chest pain [Recovered/Resolved]
  - Coronary artery disease [Unknown]
  - Gastrointestinal haemorrhage [Unknown]
  - Mitral valve incompetence [Unknown]
  - Aortic valve incompetence [Unknown]
  - Tricuspid valve incompetence [Unknown]
  - Hypertensive heart disease [Unknown]
  - Asthenia [Unknown]
  - Abdominal pain upper [Unknown]
  - Chest pain [Unknown]
  - Catheterisation cardiac [Unknown]
  - Cardiomyopathy [Unknown]
  - Gastritis [Unknown]
  - Joint dislocation [Unknown]
  - Disorientation [Unknown]
  - Rib fracture [Unknown]
  - Bronchitis [Unknown]
  - Spinal fracture [Unknown]
  - Diverticulum intestinal [Unknown]
  - Chronic obstructive pulmonary disease [Unknown]
  - Gastrooesophageal reflux disease [Unknown]
